FAERS Safety Report 13772585 (Version 2)
Quarter: 2018Q2

REPORT INFORMATION
  Report Type: Spontaneous
  Country: SG (occurrence: SG)
  Receive Date: 20170720
  Receipt Date: 20180417
  Transmission Date: 20180711
  Serious: Yes (Hospitalization)
  Sender: FDA-Public Use
  Company Number: SG-BAYER-2017-132766

PATIENT
  Sex: Male

DRUGS (1)
  1. ASPIRIN CARDIO 100 MG [Suspect]
     Active Substance: ASPIRIN
     Indication: THROMBOSIS PROPHYLAXIS
     Dosage: 100 MG, UNK
     Route: 064

REACTIONS (8)
  - Pneumonia [None]
  - Sepsis neonatal [None]
  - Low birth weight baby [None]
  - Premature baby [None]
  - Neonatal respiratory distress syndrome [None]
  - Hypoglycaemia neonatal [None]
  - Anaemia neonatal [None]
  - Foetal exposure during pregnancy [None]
